FAERS Safety Report 9665034 (Version 2)
Quarter: 2014Q2

REPORT INFORMATION
  Report Type: Spontaneous
  Country: US (occurrence: US)
  Receive Date: 20131101
  Receipt Date: 20140417
  Transmission Date: 20141212
  Serious: Yes (Other)
  Sender: FDA-Public Use
  Company Number: US-PFIZER INC-2013310728

PATIENT
  Age: 73 Year
  Sex: Male
  Weight: 44.9 kg

DRUGS (12)
  1. TOVIAZ [Suspect]
     Indication: HYPERTONIC BLADDER
     Dosage: 8 MG, 1X/DAY
     Route: 048
  2. ALLOPURINOL [Concomitant]
     Dosage: UNK
  3. ARICEPT [Concomitant]
     Dosage: UNK
  4. ASPIRIN [Concomitant]
     Dosage: UNK
  5. LEVODOPA-CARBIDOPA [Concomitant]
     Dosage: UNK
  6. DOCUSATE [Concomitant]
     Dosage: UNK
  7. METFORMIN [Concomitant]
     Dosage: UNK
  8. SENNA [Concomitant]
     Dosage: UNK
  9. MEMANTINE [Concomitant]
     Dosage: UNK
  10. SERTRALINE [Concomitant]
     Dosage: UNK
  11. SIMVASTATIN [Concomitant]
     Dosage: UNK
  12. LISINOPRIL [Concomitant]
     Dosage: UNK

REACTIONS (2)
  - Confusional state [Recovered/Resolved]
  - Mental status changes [Recovered/Resolved]
